FAERS Safety Report 23660159 (Version 1)
Quarter: 2024Q1

REPORT INFORMATION
  Report Type: Spontaneous
  Country: DE (occurrence: None)
  Receive Date: 20240321
  Receipt Date: 20240321
  Transmission Date: 20240410
  Serious: Yes (Hospitalization)
  Sender: FDA-Public Use
  Company Number: 2024A061978

PATIENT
  Sex: Male
  Weight: 13 kg

DRUGS (4)
  1. QUETIAPINE [Suspect]
     Active Substance: QUETIAPINE
     Indication: Accidental exposure to product by child
     Dosage: 75.0MG ONCE/SINGLE ADMINISTRATION
     Route: 048
     Dates: start: 20240226, end: 20240226
  2. LAMOTRIGINE [Suspect]
     Active Substance: LAMOTRIGINE
     Indication: Accidental exposure to product by child
     Dosage: 75.0MG ONCE/SINGLE ADMINISTRATION
     Route: 048
     Dates: start: 20240226, end: 20240226
  3. FYCOMPA [Suspect]
     Active Substance: PERAMPANEL
     Indication: Accidental exposure to product by child
     Dosage: 4.0MG ONCE/SINGLE ADMINISTRATION
     Route: 048
     Dates: start: 20240226, end: 20240226
  4. MIRTAZAPINE [Suspect]
     Active Substance: MIRTAZAPINE
     Indication: Accidental exposure to product by child
     Dosage: 15.0MG ONCE/SINGLE ADMINISTRATION
     Route: 048
     Dates: start: 20240226, end: 20240226

REACTIONS (3)
  - Miosis [Recovered/Resolved]
  - Accidental exposure to product by child [Recovered/Resolved]
  - Fatigue [Recovered/Resolved]

NARRATIVE: CASE EVENT DATE: 20240226
